FAERS Safety Report 17801814 (Version 3)
Quarter: 2020Q3

REPORT INFORMATION
  Report Type: Spontaneous
  Country: US (occurrence: US)
  Receive Date: 20200519
  Receipt Date: 20200702
  Transmission Date: 20201102
  Serious: No
  Sender: FDA-Public Use
  Company Number: US-SA-2020SA127269

PATIENT

DRUGS (2)
  1. CLOBETASOL PROPIONATE. [Concomitant]
     Active Substance: CLOBETASOL PROPIONATE
  2. DUPIXENT [Suspect]
     Active Substance: DUPILUMAB
     Indication: DERMATITIS ATOPIC
     Dosage: 300 MG, QOW
     Route: 058
     Dates: start: 20200326, end: 20200515

REACTIONS (7)
  - Rash [Unknown]
  - Drug hypersensitivity [Unknown]
  - Migraine [Unknown]
  - Chest discomfort [Unknown]
  - Eye pruritus [Unknown]
  - Insomnia [Unknown]
  - Toothache [Unknown]

NARRATIVE: CASE EVENT DATE: 20200512
